FAERS Safety Report 8088103-4 (Version None)
Quarter: 2012Q1

REPORT INFORMATION
  Report Type: 
  Country: None (occurrence: None)
  Receive Date: 20120131
  Receipt Date: 20120124
  Transmission Date: 20120608
  Serious: Yes (Hospitalization)
  Sender: FDA-Public Use
  Company Number: US-BIOGENIDEC-2011BI027217

PATIENT
  Age: 59 Year
  Sex: Female

DRUGS (17)
  1. TYSABRI [Suspect]
     Route: 042
     Dates: start: 20110822
  2. TYSABRI [Suspect]
     Indication: MULTIPLE SCLEROSIS
     Route: 042
     Dates: start: 20080612, end: 20110609
  3. DEPAKOTE ER [Concomitant]
     Route: 048
  4. DIVALPROEX SODIUM [Concomitant]
     Indication: MIGRAINE
     Route: 048
  5. METHYLPHENIDATE [Concomitant]
     Route: 048
     Dates: start: 20110713
  6. IBUPROFEN [Concomitant]
     Indication: PAIN
     Route: 048
  7. LORTAB [Concomitant]
     Indication: PAIN
     Route: 048
  8. MECLIZINE [Concomitant]
     Indication: DIZZINESS
     Route: 048
  9. AMITRIPTYLINE HCL [Concomitant]
     Route: 048
  10. NYSTATIN [Concomitant]
     Route: 048
  11. OXYBUTYNIN [Concomitant]
     Indication: URINARY INCONTINENCE
     Route: 048
  12. ACYCLOVIR TOPICAL [Concomitant]
     Indication: ORAL INFECTION
  13. VITAMIN D [Concomitant]
     Route: 048
  14. ACYCLOVIR [Concomitant]
     Indication: ORAL INFECTION
     Route: 048
  15. ARICEPT [Concomitant]
     Indication: MEMORY IMPAIRMENT
     Route: 048
  16. GABAPENTIN [Concomitant]
     Route: 048
  17. METHYLPHENIDATE [Concomitant]
     Route: 048

REACTIONS (6)
  - URINARY TRACT INFECTION [None]
  - CELLULITIS [None]
  - PYELONEPHRITIS [None]
  - CULTURE WOUND POSITIVE [None]
  - STAPHYLOCOCCUS TEST POSITIVE [None]
  - VITREOUS FLOATERS [None]
